FAERS Safety Report 15075090 (Version 1)
Quarter: 2018Q2

REPORT INFORMATION
  Report Type: Spontaneous
  Country: US (occurrence: US)
  Receive Date: 20180627
  Receipt Date: 20180627
  Transmission Date: 20180711
  Serious: Yes (Hospitalization, Other)
  Sender: FDA-Public Use
  Company Number: US-SAOL THERAPEUTICS-2017SAO01601

PATIENT
  Age: 52 Year
  Sex: Female
  Weight: 86.17 kg

DRUGS (7)
  1. LIORESAL [Suspect]
     Active Substance: BACLOFEN
     Indication: MUSCLE SPASTICITY
     Dosage: 500 ?G, \DAY
     Route: 037
     Dates: end: 2017
  2. MORPHINE [Suspect]
     Active Substance: MORPHINE
     Dosage: 0.2748 MG, \DAY
     Route: 037
  3. LIORESAL [Suspect]
     Active Substance: BACLOFEN
     Dosage: 500 ?G, \DAY
     Route: 037
     Dates: start: 2017, end: 2017
  4. LIORESAL [Suspect]
     Active Substance: BACLOFEN
     Dosage: UNK
  5. LIORESAL [Suspect]
     Active Substance: BACLOFEN
     Indication: MULTIPLE SCLEROSIS
     Dosage: 250 ?G, \DAY
     Route: 037
     Dates: start: 2017, end: 2017
  6. LIORESAL [Suspect]
     Active Substance: BACLOFEN
     Dosage: 550 ?G, \DAY
     Route: 037
     Dates: start: 2017
  7. MORPHINE [Suspect]
     Active Substance: MORPHINE
     Dosage: 0.25 MG, \DAY
     Route: 037

REACTIONS (7)
  - Agitation [Unknown]
  - Gait inability [Unknown]
  - Overdose [Recovered/Resolved]
  - Malaise [Unknown]
  - Drug withdrawal syndrome [Unknown]
  - Unresponsive to stimuli [Recovered/Resolved]
  - Device infusion issue [Unknown]

NARRATIVE: CASE EVENT DATE: 2017
